FAERS Safety Report 10498684 (Version 2)
Quarter: 2014Q4

REPORT INFORMATION
  Report Type: Spontaneous
  Country: US (occurrence: US)
  Receive Date: 20141006
  Receipt Date: 20141208
  Transmission Date: 20150528
  Serious: Yes (Hospitalization, Disabling)
  Sender: FDA-Public Use
  Company Number: US-BAYER-2014-147241

PATIENT
  Age: 26 Year
  Sex: Female
  Weight: 68 kg

DRUGS (1)
  1. MIRENA [Suspect]
     Active Substance: LEVONORGESTREL
     Indication: CONTRACEPTION
     Dosage: 20 MCG/24HR, CONT
     Route: 015
     Dates: start: 20140701, end: 20140703

REACTIONS (17)
  - Pain [Recovering/Resolving]
  - Abdominal pain [Recovering/Resolving]
  - Oropharyngeal pain [None]
  - Injury [Recovering/Resolving]
  - Procedural pain [None]
  - Deformity [None]
  - Anxiety [None]
  - Uterine perforation [Recovering/Resolving]
  - Emotional distress [None]
  - Anhedonia [None]
  - Suppressed lactation [None]
  - Grip strength decreased [None]
  - Sexual dysfunction [None]
  - Nausea [Recovering/Resolving]
  - General physical health deterioration [Recovering/Resolving]
  - Device dislocation [Recovering/Resolving]
  - Stress [None]

NARRATIVE: CASE EVENT DATE: 20140701
